FAERS Safety Report 5087196-6 (Version None)
Quarter: 2006Q3

REPORT INFORMATION
  Report Type: 
  Country: None (occurrence: None)
  Receive Date: 20060821
  Receipt Date: 20060529
  Transmission Date: 20061208
  Serious: Yes (Hospitalization)
  Sender: FDA-Public Use
  Company Number: 228750

PATIENT
  Age: 61 Year
  Sex: Male
  Weight: 94.8 kg

DRUGS (10)
  1. AVASTIN [Suspect]
     Indication: COLORECTAL CANCER METASTATIC
     Dosage: 475 MG, Q2W, INTRAVENOUS
     Route: 042
     Dates: start: 20051031, end: 20051212
  2. IRINOTECAN HCL [Suspect]
     Indication: COLORECTAL CANCER METASTATIC
     Dosage: 380 MG, Q2W, INTRAVENOUS
     Route: 042
     Dates: start: 20051031
  3. LEUCOVORIN CALCIUM [Suspect]
     Indication: COLORECTAL CANCER METASTATIC
     Dosage: 50 MG, Q2W, INTRAVENOUS
     Route: 042
     Dates: start: 20051031
  4. FLUOROURACIL [Suspect]
     Indication: COLORECTAL CANCER METASTATIC
     Dosage: 850 MG, Q2W, INTRAVENOUS
     Route: 042
     Dates: start: 20051031
  5. VENTOLIN INHALER (ALBUTEROL/ALBUTEROL SULFATE) [Concomitant]
  6. SYMBICORT (BUDESONIDE, FORMOTEROL FUMARATE) [Concomitant]
  7. TEMAZEPAM [Concomitant]
  8. ATROPINE [Concomitant]
  9. DOLASETRON (DOLASETRON MESYLATE) [Concomitant]
  10. DEXAMETHASONE [Concomitant]

REACTIONS (5)
  - BLOOD CULTURE POSITIVE [None]
  - CATHETER SITE INFECTION [None]
  - STAPHYLOCOCCAL INFECTION [None]
  - WOUND DEHISCENCE [None]
  - WOUND INFECTION STAPHYLOCOCCAL [None]
